FAERS Safety Report 20942854 (Version 1)
Quarter: 2022Q2

REPORT INFORMATION
  Report Type: Report from Study
  Country: TR (occurrence: TR)
  Receive Date: 20220610
  Receipt Date: 20220610
  Transmission Date: 20220721
  Serious: Yes (Other)
  Sender: FDA-Public Use
  Company Number: TR-SUN PHARMACEUTICAL INDUSTRIES LTD-2022RR-340359

PATIENT
  Age: 27 Year
  Sex: Female

DRUGS (1)
  1. CITALOPRAM [Suspect]
     Active Substance: CITALOPRAM HYDROBROMIDE
     Indication: Product used for unknown indication
     Dosage: 20 MG X 12
     Route: 065

REACTIONS (4)
  - Exposure during pregnancy [Unknown]
  - Suicide attempt [Unknown]
  - Pre-eclampsia [Unknown]
  - Premature delivery [Unknown]
